FAERS Safety Report 18359867 (Version 2)
Quarter: 2020Q4

REPORT INFORMATION
  Report Type: Spontaneous
  Country: US (occurrence: US)
  Receive Date: 20201008
  Receipt Date: 20201013
  Transmission Date: 20210114
  Serious: Yes (Other)
  Sender: FDA-Public Use
  Company Number: US-PFIZER INC-2020385633

PATIENT
  Age: 89 Year
  Sex: Female
  Weight: 58.51 kg

DRUGS (1)
  1. PREGABALIN. [Suspect]
     Active Substance: PREGABALIN
     Indication: PAIN
     Dosage: 25 MG, 2X/DAY (ONCE IN THE MORNING ONCE IN THE EVENING)

REACTIONS (3)
  - Product dose omission issue [Unknown]
  - Glaucoma [Unknown]
  - Chest pain [Unknown]

NARRATIVE: CASE EVENT DATE: 2020
